FAERS Safety Report 12189036 (Version 2)
Quarter: 2016Q1

REPORT INFORMATION
  Report Type: Report from Study
  Country: US (occurrence: US)
  Receive Date: 20160317
  Receipt Date: 20160325
  Transmission Date: 20160526
  Serious: Yes (Death, Hospitalization)
  Sender: FDA-Public Use
  Company Number: US-ACTELION-A-US2016-132882

PATIENT
  Age: 59 Year
  Sex: Female
  Weight: 119.27 kg

DRUGS (4)
  1. AMLODIPINE [Concomitant]
     Active Substance: AMLODIPINE BESYLATE
     Dosage: UNK
     Dates: end: 201506
  2. SELEXIPAG [Suspect]
     Active Substance: SELEXIPAG
     Indication: PULMONARY ARTERIAL HYPERTENSION
     Dosage: 400 MCG, BID
     Route: 048
     Dates: start: 20160305, end: 20160307
  3. OPSUMIT [Suspect]
     Active Substance: MACITENTAN
     Indication: PULMONARY ARTERIAL HYPERTENSION
     Dosage: 10 MG, QD
     Route: 048
  4. SELEXIPAG [Suspect]
     Active Substance: SELEXIPAG
     Dosage: 200 MCG, BID
     Route: 048
     Dates: start: 20160224, end: 20160304

REACTIONS (7)
  - Dyspnoea [Unknown]
  - Respiratory failure [Unknown]
  - Hypotension [Unknown]
  - Respiratory distress [Unknown]
  - Pain [Unknown]
  - Dizziness [Unknown]
  - Pneumonia [Fatal]

NARRATIVE: CASE EVENT DATE: 20160307
